FAERS Safety Report 24707764 (Version 1)
Quarter: 2024Q4

REPORT INFORMATION
  Report Type: Spontaneous
  Country: HR (occurrence: HR)
  Receive Date: 20241206
  Receipt Date: 20241206
  Transmission Date: 20250115
  Serious: Yes (Other)
  Sender: ELI LILLY AND COMPANY
  Company Number: None

PATIENT
  Age: 42 Year
  Sex: Male
  Weight: 95 kg

DRUGS (1)
  1. TALTZ [Suspect]
     Active Substance: IXEKIZUMAB
     Indication: Seronegative arthritis
     Dosage: 80 MG, UNKNOWN
     Route: 058
     Dates: start: 202205, end: 202410

REACTIONS (2)
  - Diarrhoea haemorrhagic [Recovering/Resolving]
  - Inflammatory bowel disease [Unknown]

NARRATIVE: CASE EVENT DATE: 20240701
